FAERS Safety Report 20651835 (Version 8)
Quarter: 2024Q1

REPORT INFORMATION
  Report Type: Spontaneous
  Country: NO (occurrence: NO)
  Receive Date: 20220330
  Receipt Date: 20240306
  Transmission Date: 20240410
  Serious: Yes (Hospitalization, Other)
  Sender: FDA-Public Use
  Company Number: NO-CELGENE-NOR-20220206702

PATIENT
  Age: 67 Year
  Sex: Female
  Weight: 76.2 kg

DRUGS (63)
  1. LENALIDOMIDE [Suspect]
     Active Substance: LENALIDOMIDE
     Indication: Follicular lymphoma
     Route: 048
  2. LENALIDOMIDE [Suspect]
     Active Substance: LENALIDOMIDE
     Indication: B-cell lymphoma
     Dosage: 20 MILLIGRAM, QD, CAPSULE, HARD
     Route: 048
     Dates: start: 20220118, end: 20220202
  3. LENALIDOMIDE [Suspect]
     Active Substance: LENALIDOMIDE
     Dosage: 40 MG, QD (20 MG, BID)
     Route: 048
     Dates: start: 20220118, end: 20220202
  4. LENALIDOMIDE [Suspect]
     Active Substance: LENALIDOMIDE
     Route: 042
     Dates: start: 20220207
  5. LENALIDOMIDE [Suspect]
     Active Substance: LENALIDOMIDE
     Dosage: 16 MILLIGRAMS AT UNKNOWN FREQUENCY
     Route: 042
     Dates: start: 20220207
  6. EPCORITAMAB [Suspect]
     Active Substance: EPCORITAMAB
     Indication: Follicular lymphoma
     Dosage: 0.16 MILLIGRAMS
     Route: 042
     Dates: start: 20210118
  7. EPCORITAMAB [Suspect]
     Active Substance: EPCORITAMAB
     Indication: B-cell lymphoma
     Dosage: 0.8 MILLIGRAMS, QD
     Route: 042
     Dates: start: 20210125, end: 20220125
  8. EPCORITAMAB [Suspect]
     Active Substance: EPCORITAMAB
     Dosage: UNK, QD
     Route: 058
     Dates: start: 20220118, end: 20220118
  9. EPCORITAMAB [Suspect]
     Active Substance: EPCORITAMAB
     Route: 042
     Dates: start: 20220201
  10. EPCORITAMAB [Suspect]
     Active Substance: EPCORITAMAB
     Dosage: 0.16 MILLIGRAMS
     Route: 042
     Dates: start: 20220207
  11. EPCORITAMAB [Suspect]
     Active Substance: EPCORITAMAB
     Route: 042
     Dates: start: 20220214
  12. EPCORITAMAB [Suspect]
     Active Substance: EPCORITAMAB
     Dosage: 48 MILLIGRAMS
     Route: 042
     Dates: start: 20220221
  13. EPCORITAMAB [Suspect]
     Active Substance: EPCORITAMAB
     Route: 042
     Dates: start: 20220301
  14. EPCORITAMAB [Suspect]
     Active Substance: EPCORITAMAB
     Route: 042
     Dates: start: 20220307
  15. EPCORITAMAB [Suspect]
     Active Substance: EPCORITAMAB
     Dosage: 0.16 MILLIGRAMS
     Dates: start: 20210118
  16. RITUXIMAB [Suspect]
     Active Substance: RITUXIMAB
     Indication: B-cell lymphoma
     Dosage: 375 MG/M2, QW (53.5714 MILLIGRAM/SQ. METER)
     Route: 042
     Dates: start: 20220118
  17. RITUXIMAB [Suspect]
     Active Substance: RITUXIMAB
     Indication: Follicular lymphoma
     Dosage: 375 MILLIGRAM/SQ. METER
     Route: 042
     Dates: start: 20220118
  18. RITUXIMAB [Suspect]
     Active Substance: RITUXIMAB
     Dosage: 375 MILLIGRAM/SQ. METER
     Dates: start: 20220201
  19. RITUXIMAB [Suspect]
     Active Substance: RITUXIMAB
     Dosage: 375 MG/M2,
     Dates: start: 20220207
  20. RITUXIMAB [Suspect]
     Active Substance: RITUXIMAB
  21. METFORMIN\SITAGLIPTIN [Concomitant]
     Active Substance: METFORMIN\SITAGLIPTIN
     Indication: Product used for unknown indication
     Dosage: UNK
     Dates: start: 20230123, end: 20230125
  22. FUROSEMIDE [Concomitant]
     Active Substance: FUROSEMIDE
     Indication: Product used for unknown indication
     Dosage: FREQUENCY TEXT: NOT PROVIDED
     Dates: start: 20220125, end: 20220126
  23. FUROSEMIDE [Concomitant]
     Active Substance: FUROSEMIDE
  24. MAGNESIUM [Concomitant]
     Active Substance: MAGNESIUM
     Indication: Product used for unknown indication
     Dosage: FREQUENCY TEXT: NOT PROVIDED
     Dates: start: 20220125, end: 20220926
  25. MAGNESIUM [Concomitant]
     Active Substance: MAGNESIUM
  26. VALTREX [Concomitant]
     Active Substance: VALACYCLOVIR HYDROCHLORIDE
     Indication: Product used for unknown indication
     Dosage: UNK UNK, QD
     Dates: start: 20220111, end: 20221219
  27. VALTREX [Concomitant]
     Active Substance: VALACYCLOVIR HYDROCHLORIDE
  28. JANUMET [Concomitant]
     Active Substance: METFORMIN HYDROCHLORIDE\SITAGLIPTIN PHOSPHATE
     Indication: Product used for unknown indication
     Dosage: UNK
     Dates: start: 2012
  29. JANUMET [Concomitant]
     Active Substance: METFORMIN HYDROCHLORIDE\SITAGLIPTIN PHOSPHATE
     Dosage: UNK UNK, QD
     Dates: start: 20220123, end: 20220125
  30. JANUMET [Concomitant]
     Active Substance: METFORMIN HYDROCHLORIDE\SITAGLIPTIN PHOSPHATE
     Dosage: UNK
     Dates: start: 2012
  31. JANUMET [Concomitant]
     Active Substance: METFORMIN HYDROCHLORIDE\SITAGLIPTIN PHOSPHATE
     Dosage: UNK
     Dates: start: 20220125, end: 20220202
  32. FRAGMIN [Concomitant]
     Active Substance: DALTEPARIN SODIUM
     Indication: Product used for unknown indication
     Dosage: UNK UNK, QD
     Dates: start: 20211215, end: 20220206
  33. FRAGMIN [Concomitant]
     Active Substance: DALTEPARIN SODIUM
  34. BACTRIM [Concomitant]
     Active Substance: SULFAMETHOXAZOLE\TRIMETHOPRIM
     Indication: Product used for unknown indication
     Dosage: UNK^, QD
     Dates: start: 20220111, end: 20221219
  35. BACTRIM [Concomitant]
     Active Substance: SULFAMETHOXAZOLE\TRIMETHOPRIM
  36. ACETAMINOPHEN [Concomitant]
     Active Substance: ACETAMINOPHEN
     Indication: Product used for unknown indication
     Dosage: UNK, QD
     Dates: start: 20220118, end: 20220201
  37. ACETAMINOPHEN [Concomitant]
     Active Substance: ACETAMINOPHEN
     Dates: start: 20220118, end: 20220207
  38. NOVORAPID [Concomitant]
     Active Substance: INSULIN ASPART
     Indication: Product used for unknown indication
     Dates: start: 20220202
  39. NOVORAPID [Concomitant]
     Active Substance: INSULIN ASPART
  40. METFORMIN [Concomitant]
     Active Substance: METFORMIN HYDROCHLORIDE
     Indication: Product used for unknown indication
     Dosage: UNK, QD
     Dates: start: 20220123, end: 20220125
  41. METFORMIN [Concomitant]
     Active Substance: METFORMIN HYDROCHLORIDE
  42. ALLOPURINOL [Concomitant]
     Active Substance: ALLOPURINOL
     Indication: Product used for unknown indication
     Dosage: UNK, QD
     Dates: start: 20220118, end: 20220214
  43. ALLOPURINOL [Concomitant]
     Active Substance: ALLOPURINOL
  44. EXFORGE [Concomitant]
     Active Substance: AMLODIPINE BESYLATE\VALSARTAN
     Indication: Product used for unknown indication
     Dosage: UNK
     Dates: start: 202001
  45. EXFORGE [Concomitant]
     Active Substance: AMLODIPINE BESYLATE\VALSARTAN
  46. SODIUM PICOSULFATE [Concomitant]
     Active Substance: SODIUM PICOSULFATE
     Indication: Product used for unknown indication
     Dosage: UNK UNK, QD
     Dates: start: 20220125, end: 20220411
  47. SODIUM PICOSULFATE [Concomitant]
     Active Substance: SODIUM PICOSULFATE
     Dosage: UNK
     Dates: start: 20220125
  48. LIPITOR [Concomitant]
     Active Substance: ATORVASTATIN CALCIUM
     Indication: Product used for unknown indication
     Dosage: UNK UNK, QD
     Dates: start: 2018
  49. LIPITOR [Concomitant]
     Active Substance: ATORVASTATIN CALCIUM
  50. LACTULOSE [Concomitant]
     Active Substance: LACTULOSE
     Indication: Product used for unknown indication
     Dosage: UNK, QD
     Dates: start: 20220125, end: 20220202
  51. LACTULOSE [Concomitant]
     Active Substance: LACTULOSE
  52. PANTOPRAZOLE SODIUM [Concomitant]
     Active Substance: PANTOPRAZOLE SODIUM
     Indication: Product used for unknown indication
     Dosage: UNK, QD
     Dates: start: 20220111
  53. PREDNISOLONE [Concomitant]
     Active Substance: PREDNISOLONE
     Indication: Prophylaxis
     Dosage: UNK, QD
     Dates: start: 20220111, end: 20220117
  54. PREDNISOLONE [Concomitant]
     Active Substance: PREDNISOLONE
     Dosage: 100 MILLIGRAMS
     Dates: start: 20220111, end: 20220117
  55. PREDNISOLONE [Concomitant]
     Active Substance: PREDNISOLONE
     Dosage: 100 MILLIGRAMS, QD
     Dates: start: 20220118, end: 20220121
  56. PREDNISOLONE [Concomitant]
     Active Substance: PREDNISOLONE
     Dosage: 100 MILLIGRAMS, QD
     Dates: start: 20220125, end: 20220128
  57. CETIRIZINE HYDROCHLORIDE [Concomitant]
     Active Substance: CETIRIZINE HYDROCHLORIDE
     Indication: Product used for unknown indication
     Dosage: 15 MILLIGRAM, QD
     Route: 048
     Dates: start: 20220118, end: 20220201
  58. CETIRIZINE HYDROCHLORIDE [Concomitant]
     Active Substance: CETIRIZINE HYDROCHLORIDE
     Dosage: 10 MILLIGRAM (CUMULATIVE DOSE: 140 MG)
     Dates: start: 20220118, end: 20220207
  59. SODIUM CHLORIDE [Concomitant]
     Active Substance: SODIUM CHLORIDE
     Indication: Product used for unknown indication
     Dosage: FREQUENCY TEXT: NOT PROVIDED
     Dates: start: 20220118, end: 20220119
  60. LEVOTHYROXINE SODIUM [Concomitant]
     Active Substance: LEVOTHYROXINE SODIUM
     Indication: Product used for unknown indication
     Dosage: UNK, QD
     Dates: start: 2007
  61. ONDANSETRON [Concomitant]
     Active Substance: ONDANSETRON
     Indication: Product used for unknown indication
     Dates: start: 20220902, end: 20220902
  62. SITAGLIPTIN [Concomitant]
     Active Substance: SITAGLIPTIN
     Indication: Product used for unknown indication
     Dates: start: 20220123, end: 20220125
  63. SODIUM CHLORIDE [Concomitant]
     Active Substance: SODIUM CHLORIDE
     Indication: Product used for unknown indication
     Dosage: UNK
     Dates: start: 20220118, end: 20220119

REACTIONS (3)
  - Cytokine release syndrome [Recovered/Resolved]
  - Pneumocystis jirovecii pneumonia [Unknown]
  - Off label use [Unknown]

NARRATIVE: CASE EVENT DATE: 20220123
